FAERS Safety Report 8962510 (Version 1)
Quarter: 2012Q4

REPORT INFORMATION
  Report Type: 
  Country: NO (occurrence: NO)
  Receive Date: 20121213
  Receipt Date: 20121213
  Transmission Date: 20130627
  Serious: Yes (Life-Threatening, Hospitalization)
  Sender: FDA-Public Use
  Company Number: NO-SANOFI-AVENTIS-2012SA089831

PATIENT
  Age: 89 Year
  Sex: Female

DRUGS (6)
  1. KLEXANE [Suspect]
     Indication: DRUG USE FOR UNKNOWN INDICATION
     Route: 058
     Dates: start: 20121029, end: 20121029
  2. WARFARIN [Suspect]
     Indication: ATRIAL FIBRILLATION
     Dosage: Aiming at an INR value of 3,4
     Route: 048
     Dates: start: 20121024, end: 20121029
  3. ALBYL-E [Suspect]
     Indication: SECONDARY PREVENTION
     Route: 065
     Dates: start: 201210, end: 20121029
  4. FORMOTEROL W/BUDESONIDE [Concomitant]
  5. LEVAXIN [Concomitant]
     Dosage: 100-150 microgram per day
  6. PAROXETINE [Concomitant]

REACTIONS (4)
  - Duodenal ulcer [Recovered/Resolved]
  - Gastrointestinal haemorrhage [Recovered/Resolved]
  - Haemorrhagic anaemia [Recovered/Resolved]
  - Haematemesis [None]
